FAERS Safety Report 5753206-3 (Version None)
Quarter: 2008Q2

REPORT INFORMATION
  Report Type: 
  Country: None (occurrence: None)
  Receive Date: 20080530
  Receipt Date: 20070828
  Transmission Date: 20081010
  Serious: No
  Sender: FDA-Public Use
  Company Number: US-KINGPHARMUSA00001-K200701103

PATIENT

DRUGS (1)
  1. CORTISPORIN [Suspect]
     Route: 031
     Dates: start: 20070823, end: 20070828

REACTIONS (2)
  - EYE IRRITATION [None]
  - INCORRECT ROUTE OF DRUG ADMINISTRATION [None]
